FAERS Safety Report 6215217-3 (Version None)
Quarter: 2009Q2

REPORT INFORMATION
  Report Type: 
  Country: None (occurrence: None)
  Receive Date: 20090604
  Receipt Date: 20090529
  Transmission Date: 20091009
  Serious: Yes (Life-Threatening)
  Sender: FDA-Public Use
  Company Number: JP-NOVOPROD-287884

PATIENT
  Age: 85 Year
  Sex: Female

DRUGS (1)
  1. NOVORAPID CHU FLEXPEN [Suspect]
     Indication: DIABETES MELLITUS
     Dosage: 20-24 UNIT (0.5-2 UNIT/HOUR)
     Route: 042

REACTIONS (1)
  - PLATELET COUNT DECREASED [None]
